FAERS Safety Report 25152729 (Version 2)
Quarter: 2025Q3

REPORT INFORMATION
  Report Type: Report from Study
  Country: US (occurrence: US)
  Receive Date: 20250403
  Receipt Date: 20250925
  Transmission Date: 20251021
  Serious: No
  Sender: SANOFI AVENTIS
  Company Number: US-SA-2025SA094530

PATIENT
  Age: 45 Year

DRUGS (2)
  1. INSULIN GLARGINE [Suspect]
     Active Substance: INSULIN GLARGINE
     Indication: Diabetic vascular disorder
     Dosage: 25 IU, BID
     Route: 058
  2. INSULIN GLARGINE [Suspect]
     Active Substance: INSULIN GLARGINE
     Indication: Blood glucose increased
     Dosage: 45U AM 40U PM, BID
     Route: 058

REACTIONS (1)
  - Off label use [Unknown]
